FAERS Safety Report 12156746 (Version 1)
Quarter: 2016Q1

REPORT INFORMATION
  Report Type: Spontaneous
  Country: JP (occurrence: JP)
  Receive Date: 20160307
  Receipt Date: 20160307
  Transmission Date: 20160526
  Serious: Yes (Other)
  Sender: FDA-Public Use
  Company Number: JP-PFIZER INC-2016087997

PATIENT
  Age: 82 Year
  Sex: Female

DRUGS (5)
  1. SUMILU [Concomitant]
     Active Substance: FELBINAC
     Indication: PAIN IN EXTREMITY
     Dosage: 1 DF, UNK
     Route: 062
     Dates: start: 20160126
  2. LYRICA [Suspect]
     Active Substance: PREGABALIN
     Indication: SCIATICA
     Dosage: 50 MG, 2X/DAY
     Route: 048
     Dates: start: 20160126, end: 20160130
  3. PRIMPERAN [Concomitant]
     Active Substance: METOCLOPRAMIDE HYDROCHLORIDE
     Indication: PAIN IN EXTREMITY
     Dosage: 15 MG, 3X/DAY
     Route: 048
     Dates: start: 20160126, end: 20160130
  4. TRAMAL OD [Suspect]
     Active Substance: TRAMADOL
     Indication: SCIATICA
     Dosage: 25 MG, 3X/DAY
     Route: 048
     Dates: start: 20160126, end: 20160130
  5. VOLTAREN [Concomitant]
     Active Substance: DICLOFENAC SODIUM
     Indication: PAIN IN EXTREMITY
     Dosage: UNK, AS NEEDED
     Route: 054
     Dates: start: 20160126

REACTIONS (6)
  - Radial nerve palsy [Unknown]
  - Dementia [Unknown]
  - Drug ineffective [Unknown]
  - Speech disorder [Recovered/Resolved]
  - Hallucination [Recovered/Resolved]
  - Arthralgia [Unknown]

NARRATIVE: CASE EVENT DATE: 20160128
